FAERS Safety Report 5758261-2 (Version None)
Quarter: 2008Q2

REPORT INFORMATION
  Report Type: 
  Country: None (occurrence: None)
  Receive Date: 20080604
  Receipt Date: 20080523
  Transmission Date: 20081010
  Serious: Yes (Hospitalization, Disabling)
  Sender: FDA-Public Use
  Company Number: GB-ROCHE-556868

PATIENT
  Sex: Male
  Weight: 89.7 kg

DRUGS (5)
  1. XELODA [Suspect]
     Indication: GASTRIC CANCER
     Dosage: 1150 MG AM AND 1300 MG PM
     Route: 048
     Dates: start: 20071220, end: 20080101
  2. EPIRUBICIN [Suspect]
     Indication: GASTRIC CANCER
     Dosage: FREQUENCY STATED AS BOLUS
     Route: 040
     Dates: start: 20071219, end: 20071219
  3. CISPLATIN [Suspect]
     Indication: GASTRIC CANCER
     Route: 042
     Dates: start: 20071219, end: 20071219
  4. DEXAMETHASONE TAB [Concomitant]
     Indication: DRUG USE FOR UNKNOWN INDICATION
     Dates: start: 20071219, end: 20080101
  5. GRANISETRON HCL [Concomitant]
     Dosage: STOP DATE REPORTED AS 22/12/08
     Dates: start: 20071219, end: 20071222

REACTIONS (3)
  - BLOOD GLUCOSE INCREASED [None]
  - HYPERGLYCAEMIC HYPEROSMOLAR NONKETOTIC SYNDROME [None]
  - PERIPHERAL ISCHAEMIA [None]
